FAERS Safety Report 10967024 (Version 1)
Quarter: 2015Q1

REPORT INFORMATION
  Report Type: Spontaneous
  Country: US (occurrence: US)
  Receive Date: 20150330
  Receipt Date: 20150330
  Transmission Date: 20150721
  Serious: Yes (Other)
  Sender: FDA-Public Use
  Company Number: US-MUNDIPHARMA DS AND PHARMACOVIGILANCE-USA-2015-0121033

PATIENT
  Age: 47 Year
  Sex: Male
  Weight: 111.11 kg

DRUGS (7)
  1. ULTRAM [Concomitant]
     Active Substance: TRAMADOL HYDROCHLORIDE
     Indication: PAIN
     Dosage: 50 MG, Q4H
     Route: 048
  2. KETAMINE [Concomitant]
     Active Substance: KETAMINE
     Indication: PAIN
     Dosage: UNK
     Route: 065
     Dates: start: 20150105
  3. MARINOL [Concomitant]
     Active Substance: DRONABINOL
     Indication: PAIN
     Dosage: UNK
     Route: 048
     Dates: start: 201401
  4. BUTRANS [Suspect]
     Active Substance: BUPRENORPHINE
     Dosage: 20 MCG/HR, WEEKLY
     Route: 062
     Dates: start: 201401
  5. BUTRANS [Suspect]
     Active Substance: BUPRENORPHINE
     Dosage: 15 MCG/HR, UNK
     Route: 062
  6. BUTRANS [Suspect]
     Active Substance: BUPRENORPHINE
     Indication: PAIN
     Dosage: 15 MCG/HR, WEEKLY
     Route: 062
     Dates: start: 201501, end: 20150303
  7. ALBUTEROL                          /00139501/ [Concomitant]
     Active Substance: ALBUTEROL
     Indication: BRONCHOSPASM
     Dosage: UNK
     Route: 055
     Dates: start: 201312

REACTIONS (15)
  - Ileus [Not Recovered/Not Resolved]
  - Muscle spasms [Unknown]
  - Asthma [Not Recovered/Not Resolved]
  - Constipation [Not Recovered/Not Resolved]
  - Drug withdrawal syndrome [Unknown]
  - Pulmonary congestion [Recovered/Resolved]
  - Pneumonitis [Not Recovered/Not Resolved]
  - Activities of daily living impaired [Unknown]
  - Productive cough [Recovered/Resolved]
  - Hyperhidrosis [Recovered/Resolved]
  - Hyperaesthesia [Unknown]
  - Drug ineffective [Not Recovered/Not Resolved]
  - Pain [Unknown]
  - Rhinorrhoea [Recovered/Resolved]
  - Tremor [Recovered/Resolved]

NARRATIVE: CASE EVENT DATE: 201306
